FAERS Safety Report 8808091 (Version 3)
Quarter: 2015Q2

REPORT INFORMATION
  Report Type: Report from Study
  Country: US (occurrence: US)
  Receive Date: 20120925
  Receipt Date: 20150623
  Transmission Date: 20150821
  Serious: Yes (Death, Hospitalization, Other)
  Sender: FDA-Public Use
  Company Number: US-ROCHE-1123048

PATIENT
  Age: 46 Year
  Sex: Female

DRUGS (16)
  1. LEUCOVORIN [Concomitant]
     Active Substance: LEUCOVORIN
     Route: 065
     Dates: start: 20020114
  2. AVASTIN [Suspect]
     Active Substance: BEVACIZUMAB
     Indication: RETROPERITONEAL CANCER
  3. 5-FLUOROURACIL [Concomitant]
     Active Substance: FLUOROURACIL
     Route: 065
     Dates: end: 20020114
  4. PEPCID [Concomitant]
     Active Substance: FAMOTIDINE
  5. HEPARIN [Concomitant]
     Active Substance: HEPARIN SODIUM
  6. AVASTIN [Suspect]
     Active Substance: BEVACIZUMAB
     Indication: METASTASES TO PERITONEUM
     Route: 042
  7. OXALIPLATIN. [Concomitant]
     Active Substance: OXALIPLATIN
     Route: 065
     Dates: start: 20050808
  8. FOLINIC ACID [Concomitant]
     Active Substance: LEUCOVORIN
  9. LASIX [Concomitant]
     Active Substance: FUROSEMIDE
     Route: 065
  10. LOTREL [Concomitant]
     Active Substance: AMLODIPINE BESYLATE\BENAZEPRIL HYDROCHLORIDE
     Dosage: 10-20 MG
     Route: 065
  11. LEVAQUIN [Concomitant]
     Active Substance: LEVOFLOXACIN
  12. DIOVAN [Concomitant]
     Active Substance: VALSARTAN
  13. COUMADIN [Concomitant]
     Active Substance: WARFARIN SODIUM
     Route: 065
  14. AVASTIN [Suspect]
     Active Substance: BEVACIZUMAB
     Indication: COLON CANCER
     Route: 042
     Dates: start: 20050808
  15. HYDROCHLOROTHIAZIDE. [Concomitant]
     Active Substance: HYDROCHLOROTHIAZIDE
  16. TYLENOL [Concomitant]
     Active Substance: ACETAMINOPHEN

REACTIONS (10)
  - Pulmonary embolism [Unknown]
  - Thrombosis [Unknown]
  - Rectal haemorrhage [Unknown]
  - Epistaxis [Unknown]
  - Embolism [Unknown]
  - Off label use [Unknown]
  - Death [Fatal]
  - Dyspnoea [Recovered/Resolved]
  - Pneumonia [Unknown]
  - Disease progression [Unknown]

NARRATIVE: CASE EVENT DATE: 20080902
